FAERS Safety Report 7232654-9 (Version None)
Quarter: 2011Q1

REPORT INFORMATION
  Report Type: 
  Country: None (occurrence: None)
  Receive Date: 20110106
  Receipt Date: 20101222
  Transmission Date: 20110831
  Serious: Yes (Death, Other)
  Sender: FDA-Public Use
  Company Number: AUR-APL-2010-03271

PATIENT
  Age: 49 Year
  Sex: Male

DRUGS (9)
  1. BUSPIRONE [Suspect]
     Indication: ANXIETY
     Dosage: 50MG - TID - ORAL
     Route: 048
     Dates: start: 20100920
  2. LOTREL [Concomitant]
  3. GABAPENTIN [Suspect]
     Indication: ANXIETY
     Dosage: 500MG - TID - ORAL
     Route: 048
     Dates: start: 20100925, end: 20100101
  4. GABAPENTIN [Suspect]
     Indication: PAIN
     Dosage: 500MG - TID - ORAL
     Route: 048
     Dates: start: 20100925, end: 20100101
  5. VERAPAMIL [Concomitant]
  6. ADVIL [Concomitant]
  7. MIRTAZAPINE [Suspect]
     Indication: ANXIETY
     Dosage: 30MG - DAILY - ORAL
     Route: 048
     Dates: start: 20090920
  8. TRAZODONE [Suspect]
     Indication: ANXIETY
     Dosage: 50MG - DAILY - ORAL
     Route: 048
     Dates: start: 20100925, end: 20101101
  9. ANTACIDS [Concomitant]

REACTIONS (6)
  - CHEST PAIN [None]
  - GUN SHOT WOUND [None]
  - DIVERTICULUM [None]
  - ABNORMAL BEHAVIOUR [None]
  - COMPLETED SUICIDE [None]
  - DIARRHOEA [None]
